FAERS Safety Report 5718455-9 (Version None)
Quarter: 2008Q2

REPORT INFORMATION
  Report Type: 
  Country: None (occurrence: None)
  Receive Date: 20080425
  Receipt Date: 20080416
  Transmission Date: 20081010
  Serious: Yes (Hospitalization, Other)
  Sender: FDA-Public Use
  Company Number: FR-ABBOTT-08P-056-0444851-00

PATIENT
  Sex: Female

DRUGS (3)
  1. HUMIRA [Suspect]
     Indication: RHEUMATOID ARTHRITIS
     Route: 058
     Dates: start: 20050601, end: 20070307
  2. METHOTREXATE [Concomitant]
     Indication: RHEUMATOID ARTHRITIS
     Dates: start: 20031101
  3. NSAID'S [Concomitant]
     Indication: RHEUMATOID ARTHRITIS
     Route: 048

REACTIONS (8)
  - ASCITES [None]
  - LUNG DISORDER [None]
  - LYMPH NODE TUBERCULOSIS [None]
  - PLEURAL DISORDER [None]
  - PLEURISY [None]
  - PULMONARY TUBERCULOSIS [None]
  - TUBERCULOSIS [None]
  - TUBERCULOSIS GASTROINTESTINAL [None]
